FAERS Safety Report 4752421-5 (Version None)
Quarter: 2005Q3

REPORT INFORMATION
  Report Type: 
  Country: None (occurrence: None)
  Receive Date: 20050823
  Receipt Date: 20050808
  Transmission Date: 20060218
  Serious: Yes (Hospitalization)
  Sender: FDA-Public Use
  Company Number: FRWYE888608AUG05

PATIENT
  Age: 74 Year
  Sex: Female

DRUGS (16)
  1. BISOPROLOL FUMARATE [Suspect]
     Dosage: ORAL
     Route: 048
  2. ALDACTONE [Suspect]
     Dosage: 1 TABLET 1X PER 1 DAY ORAL
     Route: 048
  3. ASPEGIC 1000 [Suspect]
     Dosage: ORAL
     Route: 048
     Dates: end: 20050330
  4. DIAMICRON (GLICLAZIDE) [Suspect]
     Dosage: ORAL
     Route: 048
  5. DISCOTRINE (GLYCERYL TRINITRATE, DISC) [Suspect]
     Dosage: ORAL
     Route: 048
     Dates: end: 20050326
  6. PREVISCAN (FLUINDIONE) [Suspect]
     Dosage: ORAL
     Route: 048
     Dates: end: 20050330
  7. FONZYLANE (BUFLOMEDIL HYDROCHLORIDE) [Concomitant]
  8. FENOFIBRATE [Concomitant]
  9. VASTAREL (TRIMETAZIDINE HYDROCHLORIDE) [Concomitant]
  10. DAFLON (DIOSMIN) [Concomitant]
  11. STILNOX (ZOLPIDEM) [Concomitant]
  12. ATARAX [Concomitant]
  13. RISORDAN (ISOSORBIDE DINITRATE) [Concomitant]
  14. SINTROM [Concomitant]
  15. KARDEGIC (ACETYLSALICYLATE LYSINE) [Concomitant]
  16. LEVOTHYROXINE SODIUM [Concomitant]

REACTIONS (4)
  - HYPERGAMMAGLOBULINAEMIA [None]
  - PEMPHIGOID [None]
  - PULMONARY EMBOLISM [None]
  - VARICOSE ULCERATION [None]
